FAERS Safety Report 6848042-0 (Version None)
Quarter: 2010Q3

REPORT INFORMATION
  Report Type: 
  Country: None (occurrence: None)
  Receive Date: 20100716
  Receipt Date: 20100706
  Transmission Date: 20110219
  Serious: Yes (Hospitalization, Other)
  Sender: FDA-Public Use
  Company Number: CA-ABBOTT-10P-028-0656000-00

PATIENT
  Sex: Male

DRUGS (2)
  1. HUMIRA [Suspect]
     Indication: CROHN'S DISEASE
     Route: 058
     Dates: start: 20090624
  2. HUMIRA [Suspect]
     Indication: FISTULA

REACTIONS (3)
  - DEHYDRATION [None]
  - MOBILITY DECREASED [None]
  - PROCEDURAL PAIN [None]
